FAERS Safety Report 5214572-0 (Version None)
Quarter: 2007Q1

REPORT INFORMATION
  Report Type: 
  Country: None (occurrence: None)
  Receive Date: 20070117
  Receipt Date: 20070105
  Transmission Date: 20070707
  Serious: Yes (Other)
  Sender: FDA-Public Use
  Company Number: 2006BI016366

PATIENT
  Age: 47 Year
  Sex: Female

DRUGS (14)
  1. AVONEX [Suspect]
     Indication: MULTIPLE SCLEROSIS
     Dosage: 30 UG; QW; IM
     Route: 030
     Dates: start: 20061027, end: 20061030
  2. AVONEX [Suspect]
     Indication: MULTIPLE SCLEROSIS
     Dosage: 7.5 UG; IM
     Route: 030
     Dates: start: 20061129, end: 20061201
  3. ZETIA [Concomitant]
  4. PLAVIX [Concomitant]
  5. ASPIRIN [Concomitant]
  6. CO Q10 [Concomitant]
  7. ASCORBIC ACID [Concomitant]
  8. VITAMIN E [Concomitant]
  9. EVENING PRIMROSE [Concomitant]
  10. VITAMIN B COMPLEX CAP [Concomitant]
  11. CRYSTALLINE VIT B12 INJ [Concomitant]
  12. AVONEX [Suspect]
     Indication: MULTIPLE SCLEROSIS
     Dosage: 15 UG; QW; IM
     Route: 030
     Dates: start: 20061201, end: 20061201
  13. AVONEX [Suspect]
     Indication: MULTIPLE SCLEROSIS
     Dosage: 22.5 UG; QW; IM
     Route: 030
     Dates: start: 20060101
  14. AVONEX [Suspect]
     Indication: MULTIPLE SCLEROSIS
     Dosage: 30 UG; QW
     Dates: start: 20060101

REACTIONS (6)
  - BALANCE DISORDER [None]
  - DYSPNOEA [None]
  - INFLUENZA [None]
  - MOBILITY DECREASED [None]
  - UPPER RESPIRATORY TRACT INFECTION [None]
  - VISION BLURRED [None]
